FAERS Safety Report 6121774-8 (Version None)
Quarter: 2009Q1

REPORT INFORMATION
  Report Type: 
  Country: None (occurrence: None)
  Receive Date: 20090317
  Receipt Date: 20090309
  Transmission Date: 20090719
  Serious: Yes (Hospitalization)
  Sender: FDA-Public Use
  Company Number: PY-B.I. PHARMACEUTICALS,INC./RIDGEFIELD-2009-BR-00207BR

PATIENT
  Age: 53 Year
  Sex: Male

DRUGS (7)
  1. SECOTEX LONG ACTING TABLET [Suspect]
     Indication: BENIGN PROSTATIC HYPERPLASIA
     Dosage: .4MG
     Dates: start: 20080101
  2. SECOTEX [Suspect]
     Indication: BENIGN PROSTATIC HYPERPLASIA
     Dosage: .4MG
     Route: 048
     Dates: end: 20080101
  3. WARFARIN SODIUM [Concomitant]
     Indication: COAGULOPATHY
     Dosage: NR
  4. A NON-SPECIFIED MEDICATION [Concomitant]
     Indication: CARDIAC DISORDER
     Dosage: NR
  5. A NON-SPECIFIED MEDICATION [Concomitant]
     Indication: ABDOMINAL DISCOMFORT
     Dosage: NR
  6. A NON-SPECIFIED MEDICATION [Concomitant]
     Indication: ANXIETY
     Dosage: NR
  7. A NON-SPECIFIED MEDICATION [Concomitant]
     Indication: ARRHYTHMIA
     Dosage: NR

REACTIONS (2)
  - CARDIAC DISORDER [None]
  - DRUG INEFFECTIVE [None]
